FAERS Safety Report 4308350-4 (Version None)
Quarter: 2004Q1

REPORT INFORMATION
  Report Type: 
  Country: None (occurrence: None)
  Receive Date: 20040301
  Receipt Date: 20031106
  Transmission Date: 20041129
  Serious: No
  Sender: FDA-Public Use
  Company Number: PHBS2003JP12460

PATIENT
  Age: 32 Year
  Sex: Female

DRUGS (2)
  1. TEGRETOL [Suspect]
     Indication: TRIGEMINAL NEURALGIA
     Dosage: 200 MG, BID
     Route: 048
     Dates: start: 20020301, end: 20020401
  2. PROMAC [Concomitant]
     Dosage: UNK, UNK
     Route: 048

REACTIONS (1)
  - NUCLEAR MAGNETIC RESONANCE IMAGING BRAIN ABNORMAL [None]
